FAERS Safety Report 7151832-0 (Version None)
Quarter: 2010Q4

REPORT INFORMATION
  Report Type: 
  Country: None (occurrence: None)
  Receive Date: 20101210
  Receipt Date: 20101207
  Transmission Date: 20110411
  Serious: Yes (Death)
  Sender: FDA-Public Use
  Company Number: US-AMGEN-QUU422625

PATIENT

DRUGS (7)
  1. NPLATE [Suspect]
     Indication: THROMBOCYTOPENIA
     Dosage: 500 A?G/KG, UNK
     Dates: start: 20091113, end: 20100308
  2. RED BLOOD CELLS, LEUCOCYTE DEPLETED [Concomitant]
     Dosage: UNK
     Dates: start: 20100408
  3. PLATELETS [Concomitant]
     Dosage: UNK
     Dates: start: 20100406
  4. ARANESP [Concomitant]
     Dosage: 300 UNK, UNK
     Dates: start: 20100208
  5. DECITABINE [Concomitant]
     Dosage: 39 UNK, UNK
     Dates: start: 20100210
  6. DEXAMETHASONE SODIUM PHOSPHATE [Concomitant]
     Dosage: 10 UNK, UNK
     Dates: start: 20100315
  7. ONDANSETRON HYDROCHLORIDE [Concomitant]
     Dosage: 16 UNK, UNK
     Dates: start: 20100201

REACTIONS (2)
  - CHRONIC MYELOMONOCYTIC LEUKAEMIA [None]
  - SEPSIS [None]
